FAERS Safety Report 15332221 (Version 1)
Quarter: 2018Q3

REPORT INFORMATION
  Report Type: Spontaneous
  Country: AU (occurrence: AU)
  Receive Date: 20180829
  Receipt Date: 20180829
  Transmission Date: 20181010
  Serious: Yes (Other)
  Sender: FDA-Public Use
  Company Number: AU-BAUSCH-BL-2018-023084

PATIENT
  Age: 14 Year
  Sex: Male

DRUGS (5)
  1. METHYLPREDNISOLONE. [Suspect]
     Active Substance: METHYLPREDNISOLONE
     Indication: KAWASAKI^S DISEASE
     Route: 042
  2. IMMUNOGLOBULIN [Concomitant]
     Indication: KAWASAKI^S DISEASE
     Dosage: 160 G (2 G/ KG); DOSE WAS REPEATED 48 HOURS LATER
     Route: 042
  3. PREDNISOLONE. [Suspect]
     Active Substance: PREDNISOLONE
     Dosage: DOSE REDUCED
     Route: 048
  4. ASPIRIN. [Suspect]
     Active Substance: ASPIRIN
     Indication: KAWASAKI^S DISEASE
     Dosage: FOR 4?6 WEEKS
     Route: 065
  5. PREDNISOLONE. [Suspect]
     Active Substance: PREDNISOLONE
     Indication: KAWASAKI^S DISEASE
     Route: 048

REACTIONS (3)
  - Anaemia [Unknown]
  - Melaena [Unknown]
  - Duodenal ulcer [Unknown]
